FAERS Safety Report 13774416 (Version 1)
Quarter: 2017Q3

REPORT INFORMATION
  Report Type: Spontaneous
  Country: US (occurrence: US)
  Receive Date: 20170720
  Receipt Date: 20170720
  Transmission Date: 20171127
  Serious: Yes (Life-Threatening, Hospitalization, Disabling)
  Sender: FDA-Public Use
  Company Number: None

PATIENT
  Age: 49 Year
  Sex: Female
  Weight: 72 kg

DRUGS (15)
  1. COZAAR [Concomitant]
     Active Substance: LOSARTAN POTASSIUM
  2. COREG [Concomitant]
     Active Substance: CARVEDILOL
  3. PAXIL [Concomitant]
     Active Substance: PAROXETINE HYDROCHLORIDE
  4. ALBUTEROL INHALER [Concomitant]
     Active Substance: ALBUTEROL
  5. MULTI-VITAMIN [Concomitant]
     Active Substance: .ALPHA.-TOCOPHEROL ACETATE, DL-\ASCORBIC ACID\CYANOCOBALAMIN\FLUORIDE ION\FOLIC ACID\NIACIN\PYRIDOXINE\RIBOFLAVIN\THIAMINE\VITAMIN A\VITAMIN D
  6. CALCIUM [Concomitant]
     Active Substance: CALCIUM
  7. CIMZIA [Suspect]
     Active Substance: CERTOLIZUMAB PEGOL
     Indication: CROHN^S DISEASE
     Dosage: ?          QUANTITY:1 INJECTION(S);OTHER FREQUENCY:EVERY 2 WEEKS;OTHER ROUTE:INJECTED UNDER THE SKIN?
     Route: 060
     Dates: start: 20160823, end: 20170316
  8. BREO ELLIPTA [Concomitant]
     Active Substance: FLUTICASONE FUROATE\VILANTEROL TRIFENATATE
  9. CURCUMIN [Concomitant]
     Active Substance: CURCUMIN
  10. CIMZIA [Suspect]
     Active Substance: CERTOLIZUMAB PEGOL
     Indication: ARTHRITIS
     Dosage: ?          QUANTITY:1 INJECTION(S);OTHER FREQUENCY:EVERY 2 WEEKS;OTHER ROUTE:INJECTED UNDER THE SKIN?
     Route: 060
     Dates: start: 20160823, end: 20170316
  11. ALDACTONE [Concomitant]
     Active Substance: SPIRONOLACTONE
  12. PROBIOTICS [Concomitant]
     Active Substance: PROBIOTICS NOS
  13. VITAMIN C [Concomitant]
     Active Substance: ASCORBIC ACID
  14. APPLE CIDER VNEGAR [Concomitant]
  15. LEFLUNOMIDE. [Concomitant]
     Active Substance: LEFLUNOMIDE

REACTIONS (2)
  - Cardiac failure [None]
  - Electrocardiogram abnormal [None]

NARRATIVE: CASE EVENT DATE: 20170306
